FAERS Safety Report 5684832-8 (Version None)
Quarter: 2008Q1

REPORT INFORMATION
  Report Type: 
  Country: None (occurrence: None)
  Receive Date: 20080328
  Receipt Date: 20071022
  Transmission Date: 20080703
  Serious: No
  Sender: FDA-Public Use
  Company Number: US-BRISTOL-MYERS SQUIBB COMPANY-13951512

PATIENT
  Age: 71 Year
  Sex: Male
  Weight: 71 kg

DRUGS (14)
  1. ERBITUX [Suspect]
     Indication: TONGUE NEOPLASM MALIGNANT STAGE UNSPECIFIED
     Route: 042
  2. ERBITUX [Suspect]
     Indication: METASTATIC NEOPLASM
     Route: 042
  3. COUMADIN [Suspect]
     Route: 048
  4. TAXOTERE [Suspect]
  5. ALTACE [Concomitant]
  6. BUMEX [Concomitant]
  7. COREG [Concomitant]
  8. VYTORIN [Concomitant]
  9. ALDACTONE [Concomitant]
  10. AMBIEN [Concomitant]
  11. ASPIRIN [Concomitant]
     Route: 048
  12. VICODIN [Concomitant]
  13. LIDODERM [Concomitant]
  14. BENADRYL [Concomitant]
     Route: 042

REACTIONS (2)
  - DERMATITIS ACNEIFORM [None]
  - RASH [None]
